FAERS Safety Report 7089729-7 (Version None)
Quarter: 2010Q4

REPORT INFORMATION
  Report Type: 
  Country: None (occurrence: None)
  Receive Date: 20101108
  Receipt Date: 20100503
  Transmission Date: 20110411
  Serious: Yes (Death)
  Sender: FDA-Public Use
  Company Number: US-ABBOTT-10P-163-0641995-00

PATIENT

DRUGS (1)
  1. TRICOR [Suspect]

REACTIONS (1)
  - DEATH [None]
